FAERS Safety Report 6064700-2 (Version None)
Quarter: 2009Q1

REPORT INFORMATION
  Report Type: 
  Country: None (occurrence: None)
  Receive Date: 20090204
  Receipt Date: 20080731
  Transmission Date: 20090719
  Serious: No
  Sender: FDA-Public Use
  Company Number: A0734986A

PATIENT
  Age: 44 Year
  Sex: Male
  Weight: 95.5 kg

DRUGS (4)
  1. ARIXTRA [Suspect]
     Dosage: 2.5MG PER DAY
     Route: 058
     Dates: start: 20080620, end: 20080623
  2. MOBIC [Concomitant]
  3. PROTONIX [Concomitant]
  4. PEPCID [Concomitant]

REACTIONS (2)
  - DIZZINESS [None]
  - GINGIVAL BLEEDING [None]
